FAERS Safety Report 9375503 (Version 2)
Quarter: 2013Q4

REPORT INFORMATION
  Report Type: Report from Study
  Country: US (occurrence: US)
  Receive Date: 20130628
  Receipt Date: 20131008
  Transmission Date: 20140711
  Serious: Yes (Death, Life-Threatening, Hospitalization, Disabling, Other)
  Sender: FDA-Public Use
  Company Number: US-B.I. PHARMACEUTICALS,INC./RIDGEFIELD-2013-BI-18241BP

PATIENT
  Age: 81 Year
  Sex: Male
  Weight: 78 kg

DRUGS (14)
  1. DIPYRIDAMOLE [Suspect]
     Indication: CEREBROVASCULAR ACCIDENT
     Dosage: 300 MG
     Route: 048
  2. BIVALIRUDIN [Suspect]
     Indication: PERCUTANEOUS CORONARY INTERVENTION
     Dosage: FORMULATION: INJECTION; DOSE: 0.75 MG/ KG, BOLUS
     Route: 042
     Dates: start: 20110130, end: 20110130
  3. BIVALIRUDIN [Suspect]
     Dosage: DOSE: 1.75 MG/KG/HR, INFUSION
     Route: 042
     Dates: start: 20110130, end: 20110130
  4. BIVALIRUDIN [Suspect]
     Dosage: DOSE: 0.25 MG/KG/HR, INFUSION
     Route: 042
     Dates: start: 20110130, end: 20110131
  5. ASPIRIN [Suspect]
     Indication: ACUTE CORONARY SYNDROME
     Dosage: DOSE: INITIAL DOSE- }162 MG
  6. ASPIRIN [Suspect]
     Dosage: MAINTENANCE DOSE: {=100 MG
  7. ASPIRIN [Suspect]
     Dosage: 80 MG
     Route: 048
     Dates: start: 20110131
  8. CLOPIDOGREL [Suspect]
     Indication: ACUTE CORONARY SYNDROME
     Dosage: DOSE: LOADING DOSE 600 MG
     Dates: start: 20110130, end: 20110130
  9. CLOPIDOGREL [Suspect]
     Dosage: DOSE; MAINTENENCE DOSE
     Dates: start: 201101
  10. CLOPIDOGREL [Suspect]
     Dosage: 75 MG
     Route: 048
     Dates: start: 20110131
  11. SALBUTAMOL [Concomitant]
  12. METOPROLOL [Concomitant]
  13. PRAVASTATIN [Concomitant]
  14. FLUTICASONE W/SALMETEROL [Concomitant]

REACTIONS (3)
  - Gastrointestinal injury [Fatal]
  - Multi-organ failure [Not Recovered/Not Resolved]
  - Aortic aneurysm rupture [Recovered/Resolved]
